FAERS Safety Report 22230324 (Version 2)
Quarter: 2023Q2

REPORT INFORMATION
  Report Type: Spontaneous
  Country: CN (occurrence: CN)
  Receive Date: 20230419
  Receipt Date: 20230427
  Transmission Date: 20230722
  Serious: Yes (Other)
  Sender: FDA-Public Use
  Company Number: CN-PRINSTON PHARMACEUTICAL INC.-2023PRN00156

PATIENT
  Age: 47 Year
  Sex: Male

DRUGS (2)
  1. IRBESARTAN [Suspect]
     Active Substance: IRBESARTAN
     Indication: Nephrotic syndrome
     Dosage: 225 MG, 1X/DAY
     Route: 048
     Dates: start: 20201101
  2. IRBESARTAN [Suspect]
     Active Substance: IRBESARTAN
     Dosage: 300 MG, 1X/DAY
     Route: 048
     Dates: start: 20201103, end: 20201203

REACTIONS (1)
  - Anaemia [Recovered/Resolved]
